FAERS Safety Report 5569415-2 (Version None)
Quarter: 2007Q4

REPORT INFORMATION
  Report Type: 
  Country: None (occurrence: None)
  Receive Date: 20071217
  Receipt Date: 20071210
  Transmission Date: 20080405
  Serious: Yes (Other)
  Sender: FDA-Public Use
  Company Number: 07122349

PATIENT
  Age: 20 Year
  Sex: Female

DRUGS (1)
  1. CLOBETASOL PROPIONATE [Suspect]
     Indication: SKIN DISORDER
     Dosage: QD, TOPICAL
     Route: 061

REACTIONS (6)
  - ACNE [None]
  - APPLICATION SITE REACTION [None]
  - HYPERTRICHOSIS [None]
  - SELF-MEDICATION [None]
  - TELANGIECTASIA [None]
  - TRICHOSTASIS SPINULOSA [None]
